FAERS Safety Report 10884447 (Version 5)
Quarter: 2016Q1

REPORT INFORMATION
  Report Type: Report from Study
  Country: IT (occurrence: IT)
  Receive Date: 20150304
  Receipt Date: 20160119
  Transmission Date: 20160525
  Serious: Yes (Hospitalization)
  Sender: FDA-Public Use
  Company Number: IT-ROCHE-1275586

PATIENT
  Age: 59 Year
  Sex: Female
  Weight: 43 kg

DRUGS (25)
  1. PREDNISONE. [Suspect]
     Active Substance: PREDNISONE
     Indication: DIFFUSE LARGE B-CELL LYMPHOMA
     Dosage: DATE OF MOST RECENT DOSE (100 MG) PRIOR TO AE ONSET : 07/SEP/2013.
     Route: 048
     Dates: start: 20130516
  2. PROCODINE [Concomitant]
     Route: 065
     Dates: start: 20131028, end: 20131101
  3. BISOPROLOL [Concomitant]
     Active Substance: BISOPROLOL
     Route: 065
     Dates: start: 2009
  4. LACTITOL [Concomitant]
     Active Substance: LACTITOL
     Route: 065
     Dates: start: 20130606, end: 20131224
  5. FUROSEMIDE. [Concomitant]
     Active Substance: FUROSEMIDE
     Route: 065
     Dates: start: 20140121
  6. RITUXIMAB [Suspect]
     Active Substance: RITUXIMAB
     Indication: DIFFUSE LARGE B-CELL LYMPHOMA
     Dosage: DATE OF MOST RECENT DOSE (310 ML WITH CONCENTRATION OF 1.9 MG/ML) PRIOR TO AE ONSET : 03/SEP/2013, 0
     Route: 042
     Dates: start: 20130516
  7. NUTRIDRINK [Concomitant]
     Route: 065
     Dates: start: 20130827, end: 20131105
  8. MYCOSTATIN [Concomitant]
     Active Substance: NYSTATIN
     Route: 065
     Dates: start: 20130516, end: 20131112
  9. DOXORUBICIN [Suspect]
     Active Substance: DOXORUBICIN
     Indication: DIFFUSE LARGE B-CELL LYMPHOMA
     Dosage: DATE OF MOST RECENT DOSE (77 MG) PRIOR TO AE ONSET : 03/SEP/2013.
     Route: 042
     Dates: start: 20130517
  10. SALMETEROL XINAFOATE/FLUTICASONE PROPIONATE [Concomitant]
     Active Substance: FLUTICASONE PROPIONATE\SALMETEROL XINAFOATE
     Indication: CHRONIC OBSTRUCTIVE PULMONARY DISEASE
     Route: 065
     Dates: start: 2009
  11. LEVOFLOXACINE [Concomitant]
     Active Substance: LEVOFLOXACIN
     Route: 065
     Dates: start: 20130819, end: 20130826
  12. LANSOPRAZOLE. [Concomitant]
     Active Substance: LANSOPRAZOLE
     Route: 065
     Dates: start: 20130516, end: 20131105
  13. PREGABALIN. [Concomitant]
     Active Substance: PREGABALIN
     Route: 065
     Dates: start: 20130613, end: 20131105
  14. TIOTROPIUM BROMIDE [Concomitant]
     Active Substance: TIOTROPIUM BROMIDE
     Indication: CHRONIC OBSTRUCTIVE PULMONARY DISEASE
     Route: 065
     Dates: start: 2009
  15. AMIKACINE [Concomitant]
     Active Substance: AMIKACIN
     Route: 065
     Dates: start: 20130910, end: 20130914
  16. CYCLOPHOSPHAMIDE. [Suspect]
     Active Substance: CYCLOPHOSPHAMIDE
     Indication: DIFFUSE LARGE B-CELL LYMPHOMA
     Dosage: DATE OF MOST RECENT DOSE (1160 MG) PRIOR TO AE ONSET : 03/SEP/2013.
     Route: 042
     Dates: start: 20130517
  17. CARBOCYSTEINE [Concomitant]
     Active Substance: CARBOCYSTEINE
     Indication: CHRONIC OBSTRUCTIVE PULMONARY DISEASE
     Route: 065
     Dates: start: 20130808
  18. AMOXICILLIN/CLAVULANIC ACID [Concomitant]
     Active Substance: AMOXICILLIN\CLAVULANIC ACID
     Route: 065
     Dates: start: 20131101, end: 20131103
  19. VANCOMYCIN [Concomitant]
     Active Substance: VANCOMYCIN
     Route: 065
     Dates: start: 20130914, end: 20130923
  20. VINCRISTINE [Suspect]
     Active Substance: VINCRISTINE
     Indication: DIFFUSE LARGE B-CELL LYMPHOMA
     Dosage: DATE OF MOST RECENT DOSE PRIOR TO AE ONSET : 03/SEP/2013, 2 MG
     Route: 050
     Dates: start: 20130517
  21. NEURABEN [Concomitant]
     Active Substance: CYANOCOBALAMIN\PYRIDOXINE\THIAMINE
     Route: 065
     Dates: start: 20130612
  22. AMPICILLIN-SULBACTAM [Concomitant]
     Route: 065
     Dates: start: 20131028, end: 20131101
  23. MEROPENEM. [Concomitant]
     Active Substance: MEROPENEM
     Route: 065
     Dates: start: 20130914, end: 20130923
  24. GINEXID VAGINAL OVULES [Concomitant]
     Route: 065
     Dates: start: 20130805, end: 20130811
  25. ZITHROMAX [Concomitant]
     Active Substance: AZITHROMYCIN DIHYDRATE
     Route: 065
     Dates: start: 20130827, end: 20130901

REACTIONS (6)
  - Pneumonitis [Recovered/Resolved]
  - Bronchial obstruction [Recovered/Resolved with Sequelae]
  - Febrile neutropenia [Recovered/Resolved]
  - Mucosal inflammation [Recovered/Resolved]
  - Chronic obstructive pulmonary disease [Recovered/Resolved]
  - Pneumonitis [Recovered/Resolved]

NARRATIVE: CASE EVENT DATE: 20130909
